FAERS Safety Report 21015852 (Version 2)
Quarter: 2022Q3

REPORT INFORMATION
  Report Type: Spontaneous
  Country: JP (occurrence: JP)
  Receive Date: 20220628
  Receipt Date: 20220715
  Transmission Date: 20221027
  Serious: Yes (Life-Threatening, Hospitalization, Other)
  Sender: FDA-Public Use
  Company Number: JP-MLMSERVICE-20220617-3624542-1

PATIENT
  Age: 31 Year
  Sex: Male
  Weight: 80.8 kg

DRUGS (2)
  1. ALLOPURINOL [Suspect]
     Active Substance: ALLOPURINOL
     Indication: Gout
     Route: 048
  2. MODERNA COVID-19 VACCINE [Suspect]
     Active Substance: ELASOMERAN
     Indication: COVID-19 immunisation

REACTIONS (3)
  - Drug reaction with eosinophilia and systemic symptoms [Recovered/Resolved]
  - Hepatic function abnormal [Recovered/Resolved]
  - Human herpesvirus 6 infection reactivation [Recovered/Resolved]
